FAERS Safety Report 10786742 (Version 2)
Quarter: 2015Q2

REPORT INFORMATION
  Report Type: Spontaneous
  Country: GB (occurrence: GB)
  Receive Date: 20150211
  Receipt Date: 20150618
  Transmission Date: 20150821
  Serious: Yes (Hospitalization)
  Sender: FDA-Public Use
  Company Number: GB-BIOGENIDEC-2015BI013089

PATIENT
  Sex: Male

DRUGS (10)
  1. FAMPYRA [Suspect]
     Active Substance: DALFAMPRIDINE
     Indication: SECONDARY PROGRESSIVE MULTIPLE SCLEROSIS
     Route: 048
     Dates: start: 20130603
  2. ACIZLANS (NOS) [Concomitant]
  3. DICLOFENAC [Concomitant]
     Active Substance: DICLOFENAC
  4. TRAMADOL [Concomitant]
     Active Substance: TRAMADOL
  5. SILDENAFIL. [Concomitant]
     Active Substance: SILDENAFIL
  6. OXYBUTYNIN [Concomitant]
     Active Substance: OXYBUTYNIN
  7. POSACONAZOLE [Concomitant]
     Active Substance: POSACONAZOLE
  8. BACLOFEN. [Concomitant]
     Active Substance: BACLOFEN
  9. COTRIMOXAZOLE [Concomitant]
     Active Substance: SULFAMETHOXAZOLE\TRIMETHOPRIM
  10. PREDNISOLONE. [Concomitant]
     Active Substance: PREDNISOLONE

REACTIONS (2)
  - Febrile neutropenia [Unknown]
  - Secondary progressive multiple sclerosis [Recovered/Resolved]
